FAERS Safety Report 9027859 (Version 2)
Quarter: 2013Q4

REPORT INFORMATION
  Report Type: Spontaneous
  Country: US (occurrence: US)
  Receive Date: 20130124
  Receipt Date: 20131101
  Transmission Date: 20140711
  Serious: Yes (Death, Hospitalization, Other)
  Sender: FDA-Public Use
  Company Number: US-RANBAXY-2007US-05435

PATIENT
  Age: 1 Month
  Sex: Male

DRUGS (1)
  1. CARBINOXAMINE MALEATE\DEXTROMETHORPHAN\PSEUDOEPHEDRINE [Suspect]
     Indication: COUGH
     Dosage: UNK
     Route: 065

REACTIONS (3)
  - Toxicity to various agents [Fatal]
  - Interstitial lung disease [Unknown]
  - Pyrexia [Unknown]
